FAERS Safety Report 18398165 (Version 1)
Quarter: 2020Q4

REPORT INFORMATION
  Report Type: Spontaneous
  Country: US (occurrence: US)
  Receive Date: 20201019
  Receipt Date: 20201019
  Transmission Date: 20210114
  Serious: Yes (Hospitalization)
  Sender: FDA-Public Use
  Company Number: None

PATIENT
  Age: 37 Year
  Sex: Female

DRUGS (1)
  1. TREPROSTINIL MDV 2.5MG/ML TEVA PARENTERAL MEDICINES [Suspect]
     Active Substance: TREPROSTINIL
     Indication: PULMONARY ARTERIAL HYPERTENSION
     Dosage: ?          OTHER DOSE:38NG/KG/MIN;OTHER FREQUENCY:CONTINUOUS;OTHER ROUTE:IV?
     Dates: start: 20140404

REACTIONS (2)
  - Condition aggravated [None]
  - Pulmonary arterial hypertension [None]

NARRATIVE: CASE EVENT DATE: 20201013
